FAERS Safety Report 21402157 (Version 1)
Quarter: 2022Q4

REPORT INFORMATION
  Report Type: Spontaneous
  Country: US (occurrence: None)
  Receive Date: 20221002
  Receipt Date: 20221002
  Transmission Date: 20230112
  Serious: No
  Sender: FDA-Public Use
  Company Number: None

PATIENT
  Age: 46 Year
  Sex: Female
  Weight: 110.25 kg

DRUGS (6)
  1. BEBTELOVIMAB [Suspect]
     Active Substance: BEBTELOVIMAB
     Indication: COVID-19
     Route: 042
     Dates: start: 20220923, end: 20220923
  2. LEVOTHYROXINE [Concomitant]
     Active Substance: LEVOTHYROXINE
  3. SERTRALINE [Concomitant]
     Active Substance: SERTRALINE HYDROCHLORIDE
  4. flownase [Concomitant]
  5. VITAMIN D3 [Concomitant]
     Active Substance: CHOLECALCIFEROL
  6. CLARITIN [Concomitant]
     Active Substance: LORATADINE

REACTIONS (7)
  - Heart rate decreased [None]
  - Chest discomfort [None]
  - Body temperature increased [None]
  - Nausea [None]
  - Lip swelling [None]
  - Lip pruritus [None]
  - Infusion site swelling [None]

NARRATIVE: CASE EVENT DATE: 20220923
